FAERS Safety Report 23299725 (Version 1)
Quarter: 2023Q4

REPORT INFORMATION
  Report Type: Spontaneous
  Country: CN (occurrence: CN)
  Receive Date: 20231215
  Receipt Date: 20231215
  Transmission Date: 20240110
  Serious: Yes (Other)
  Sender: FDA-Public Use
  Company Number: CN-TAKEDA-2023TUS118749

PATIENT
  Age: 46 Year
  Sex: Female
  Weight: 55 kg

DRUGS (1)
  1. ENANTONE LP [Suspect]
     Active Substance: LEUPROLIDE ACETATE
     Indication: Breast cancer female
     Dosage: 3.75 MILLIGRAM, QD
     Route: 058
     Dates: start: 20231030, end: 20231030

REACTIONS (2)
  - White blood cell count decreased [Recovered/Resolved]
  - Neutrophil count decreased [Recovered/Resolved]

NARRATIVE: CASE EVENT DATE: 20231031
